FAERS Safety Report 5270234-5 (Version None)
Quarter: 2007Q1

REPORT INFORMATION
  Report Type: 
  Country: None (occurrence: None)
  Receive Date: 20070320
  Receipt Date: 20070312
  Transmission Date: 20070707
  Serious: Yes (Hospitalization, Other)
  Sender: FDA-Public Use
  Company Number: HQWYE156208AUG06

PATIENT
  Sex: Female
  Weight: 37 kg

DRUGS (9)
  1. MYLOTARG [Suspect]
     Indication: ACUTE MYELOID LEUKAEMIA RECURRENT
     Route: 041
     Dates: start: 20060308, end: 20060308
  2. MYLOTARG [Suspect]
     Route: 041
     Dates: start: 20060323, end: 20060323
  3. ISCOTIN [Concomitant]
     Indication: PROPHYLAXIS
     Route: 048
     Dates: start: 20041231, end: 20060401
  4. ISEPAMICIN SULFATE [Suspect]
     Dosage: NOT SPECIFIED
     Route: 065
  5. AMLODIN [Concomitant]
     Route: 048
     Dates: start: 20041231, end: 20060401
  6. STREPTOCOCCUS FAECALIS [Concomitant]
     Indication: PROPHYLAXIS
     Route: 048
     Dates: start: 20050520, end: 20060401
  7. FAMOTIDINE [Concomitant]
     Indication: PROPHYLAXIS
     Route: 048
     Dates: start: 20041231, end: 20060401
  8. CIPROFLOXACIN [Concomitant]
     Indication: PROPHYLAXIS
     Route: 048
     Dates: start: 20060314, end: 20060318
  9. BAKTAR [Concomitant]
     Indication: PROPHYLAXIS
     Dosage: NOT SPECIFIED
     Route: 048
     Dates: start: 20041231, end: 20060401

REACTIONS (5)
  - BLOOD URIC ACID INCREASED [None]
  - DISSEMINATED INTRAVASCULAR COAGULATION [None]
  - HYPOALBUMINAEMIA [None]
  - PNEUMONIA [None]
  - RENAL FAILURE [None]
